FAERS Safety Report 9713353 (Version 5)
Quarter: 2014Q2

REPORT INFORMATION
  Report Type: Report from Study
  Country: US (occurrence: US)
  Receive Date: 20131126
  Receipt Date: 20140513
  Transmission Date: 20141212
  Serious: Yes (Death, Hospitalization)
  Sender: FDA-Public Use
  Company Number: US-IPSEN BIOPHARMACEUTICALS, INC.-2013-5187

PATIENT
  Age: 10 Year
  Sex: Female

DRUGS (5)
  1. INCRELEX [Suspect]
     Indication: PRIMARY INSULIN LIKE GROWTH FACTOR-1 DEFICIENCY
     Route: 058
  2. INCRELEX [Suspect]
     Route: 058
     Dates: start: 20100315
  3. METFORMIN [Concomitant]
     Indication: PRODUCT USED FOR UNKNOWN INDICATION
     Dosage: NOT REPORTED
     Route: 065
  4. LISINOPRIL [Concomitant]
     Indication: PRODUCT USED FOR UNKNOWN INDICATION
     Dosage: V
     Route: 065
  5. BICITRA [Concomitant]
     Indication: PRODUCT USED FOR UNKNOWN INDICATION
     Dosage: NOT REPORTED
     Route: 065

REACTIONS (6)
  - Death [Fatal]
  - Brain injury [Unknown]
  - Viral infection [Unknown]
  - Dehydration [Unknown]
  - Electrolyte imbalance [Unknown]
  - Convulsion [Unknown]
